FAERS Safety Report 8483569-X (Version None)
Quarter: 2012Q3

REPORT INFORMATION
  Report Type: 
  Country: None (occurrence: None)
  Receive Date: 20120702
  Receipt Date: 20120628
  Transmission Date: 20120928
  Serious: Yes (Life-Threatening, Other)
  Sender: FDA-Public Use
  Company Number: SE-MERCK-1206USA05006

PATIENT
  Age: 67 Year
  Sex: Male

DRUGS (3)
  1. AMLODIPINE [Suspect]
     Route: 065
  2. ZOCOR [Suspect]
     Route: 048
  3. VASOTEC [Suspect]
     Indication: HYPERTENSION
     Route: 048

REACTIONS (3)
  - PHARYNGEAL OEDEMA [None]
  - ANGIOEDEMA [None]
  - PNEUMONIA [None]
